FAERS Safety Report 8976120 (Version 1)
Quarter: 2012Q4

REPORT INFORMATION
  Report Type: 
  Country: FR (occurrence: FR)
  Receive Date: 20121220
  Receipt Date: 20121220
  Transmission Date: 20130627
  Serious: Yes (Hospitalization, Other)
  Sender: FDA-Public Use
  Company Number: PHHY2012FR115685

PATIENT
  Age: 74 Year
  Sex: Male

DRUGS (1)
  1. COTAREG [Suspect]
     Indication: HYPERTENSION
     Dosage: 1 DF, UNK
     Route: 048
     Dates: start: 200910, end: 20120612

REACTIONS (11)
  - Pancreatitis acute [Unknown]
  - Diarrhoea [Unknown]
  - Decreased appetite [Unknown]
  - Vomiting [Unknown]
  - Abdominal pain [Unknown]
  - General physical health deterioration [Unknown]
  - Gastroenteritis viral [Unknown]
  - Dehydration [Unknown]
  - Renal failure acute [Recovering/Resolving]
  - Metabolic acidosis [Recovering/Resolving]
  - Renal tubular necrosis [Unknown]
